FAERS Safety Report 5368647-6 (Version None)
Quarter: 2007Q2

REPORT INFORMATION
  Report Type: 
  Country: None (occurrence: None)
  Receive Date: 20070625
  Receipt Date: 20070615
  Transmission Date: 20071010
  Serious: Yes (Other)
  Sender: FDA-Public Use
  Company Number: CH-AMGEN-UK229981

PATIENT
  Sex: Female
  Weight: 70 kg

DRUGS (9)
  1. ARANESP [Suspect]
     Indication: DIALYSIS
     Dates: start: 20050701, end: 20070601
  2. CALCIUM ACETATE [Concomitant]
     Route: 048
     Dates: start: 20050101
  3. ROCALTROL [Concomitant]
     Dates: start: 20050101
  4. CONCOR [Concomitant]
     Route: 048
     Dates: start: 20060101
  5. COZAAR [Concomitant]
     Route: 048
     Dates: start: 20050101
  6. MARCUMAR [Concomitant]
     Route: 048
     Dates: start: 20060101
  7. CLARITIN [Concomitant]
     Route: 048
     Dates: start: 20060101
  8. ATORVASTATIN CALCIUM [Concomitant]
     Route: 048
     Dates: start: 20050101
  9. DREISAVIT [Concomitant]
     Route: 048
     Dates: start: 20060101

REACTIONS (2)
  - METASTASIS [None]
  - NEOPLASM RECURRENCE [None]
